FAERS Safety Report 7307338-9 (Version None)
Quarter: 2011Q1

REPORT INFORMATION
  Report Type: 
  Country: None (occurrence: None)
  Receive Date: 20110223
  Receipt Date: 20110221
  Transmission Date: 20110831
  Serious: Yes (Other)
  Sender: FDA-Public Use
  Company Number: JP-PFIZER INC-2011033898

PATIENT
  Age: 66 Year
  Sex: Male

DRUGS (3)
  1. CHAMPIX [Suspect]
     Indication: SMOKING CESSATION THERAPY
     Dosage: 2 MG/DAY
     Route: 048
     Dates: start: 20100901
  2. ZYPREXA [Concomitant]
     Dosage: 10 MG/DAY
     Route: 048
  3. ABILIFY [Concomitant]
     Dosage: 12 MG/DAY
     Route: 048

REACTIONS (1)
  - PARKINSONISM [None]
